FAERS Safety Report 9186594 (Version 2)
Quarter: 2013Q3

REPORT INFORMATION
  Report Type: Spontaneous
  Country: US (occurrence: None)
  Receive Date: 20120628
  Receipt Date: 20130724
  Transmission Date: 20140515
  Serious: Yes (Other)
  Sender: FDA-Public Use
  Company Number: PHEH2011US06701

PATIENT
  Age: 63 Year
  Sex: Female

DRUGS (8)
  1. RECLAST [Suspect]
     Indication: OSTEOPOROSIS
     Dosage: YEAR
     Route: 042
     Dates: start: 20111011
  2. ASPIRIN (ACETYLSALICYLIC ACID) [Concomitant]
  3. LEXAPRO (ESCITALOPRAM OXALATE) [Concomitant]
  4. WATER PILLS (AMMONIUM CHLORIDE, CAFFEINE) [Concomitant]
  5. HYDROCHLOROTHIAZIDE (HYDROCHLOROTHIAZIDE) [Concomitant]
  6. FISH OIL (FISH OIL) [Concomitant]
  7. CALCIUM WITH VITAMIN D (CALCIUM PHOSPHATE, CALCIUM SODIUM LACTATE, ERGOCALCIFEROL) [Concomitant]
  8. VITAMIN B12 (CYANOCOBALAMIN) [Concomitant]

REACTIONS (17)
  - Pain [None]
  - Pyrexia [None]
  - Chest pain [None]
  - Abdominal pain [None]
  - Malaise [None]
  - Influenza like illness [None]
  - Chills [None]
  - Myalgia [None]
  - Arthralgia [None]
  - Fatigue [None]
  - Movement disorder [None]
  - Pain in extremity [None]
  - Bone pain [None]
  - Nausea [None]
  - Vomiting [None]
  - Headache [None]
  - Diarrhoea [None]
